FAERS Safety Report 10572001 (Version 2)
Quarter: 2014Q4

REPORT INFORMATION
  Report Type: Spontaneous
  Country: US (occurrence: US)
  Receive Date: 20141107
  Receipt Date: 20141211
  Transmission Date: 20150529
  Serious: Yes (Death, Life-Threatening, Other)
  Sender: FDA-Public Use
  Company Number: US-MERCK-1411USA003268

PATIENT
  Sex: Male
  Weight: 62.59 kg

DRUGS (13)
  1. ACTOS [Concomitant]
     Active Substance: PIOGLITAZONE HYDROCHLORIDE
     Dosage: 15 MG, QD
  2. PRILOSEC [Concomitant]
     Active Substance: OMEPRAZOLE MAGNESIUM
     Dosage: 40 MG, QD
  3. LOSARTAN POTASSIUM. [Concomitant]
     Active Substance: LOSARTAN POTASSIUM
     Dosage: 25 MG, BID
     Route: 048
  4. ASPIRIN. [Concomitant]
     Active Substance: ASPIRIN
     Dosage: 40.5 MG, QD  (0.5 X 81MG TAB)
  5. JANUVIA [Suspect]
     Active Substance: SITAGLIPTIN PHOSPHATE
     Indication: TYPE 2 DIABETES MELLITUS
     Dosage: 100 MG, QD
     Route: 048
     Dates: start: 20071001, end: 20121113
  6. JANUVIA [Suspect]
     Active Substance: SITAGLIPTIN PHOSPHATE
     Dosage: 25 MG, TAKE1 AS DIRECTED
     Route: 048
     Dates: start: 20121114, end: 20130514
  7. ALLEGRA [Concomitant]
     Active Substance: FEXOFENADINE HYDROCHLORIDE
     Dosage: 30 MG, BID PRN
  8. GLIPIZIDE. [Concomitant]
     Active Substance: GLIPIZIDE
     Dosage: 5 MG, BID
  9. SYNTHROID [Concomitant]
     Active Substance: LEVOTHYROXINE SODIUM
     Dosage: 50 MICROGRAM, QD
  10. COZAAR [Concomitant]
     Active Substance: LOSARTAN POTASSIUM
     Dosage: 12.5 MG, QD (0.5 X 25MG TAB)
     Route: 048
  11. SIMVASTATIN. [Concomitant]
     Active Substance: SIMVASTATIN
     Dosage: 20 MG, QD
     Route: 048
  12. ZOCOR [Concomitant]
     Active Substance: SIMVASTATIN
     Dosage: 80 MG, QD
     Route: 048
  13. LOPRESSOR [Concomitant]
     Active Substance: METOPROLOL TARTRATE
     Dosage: 50 MG, QD

REACTIONS (22)
  - Lymphadenopathy [Unknown]
  - Treatment noncompliance [Unknown]
  - Osteoarthritis [Unknown]
  - Coronary artery disease [Unknown]
  - Seizure [Unknown]
  - Diabetes mellitus inadequate control [Unknown]
  - Cholelithiasis [Unknown]
  - Pulmonary granuloma [Unknown]
  - Metastases to liver [Unknown]
  - Hypomagnesaemia [Unknown]
  - Hypovolaemia [Unknown]
  - Portal vein thrombosis [Unknown]
  - Renal cyst [Unknown]
  - Hypercholesterolaemia [Unknown]
  - Hypertension [Unknown]
  - Pancreatic carcinoma [Unknown]
  - Kidney small [Unknown]
  - Hypothyroidism [Unknown]
  - Death [Fatal]
  - Rhinoplasty [Unknown]
  - Gastrooesophageal reflux disease [Unknown]
  - Knee operation [Unknown]

NARRATIVE: CASE EVENT DATE: 20121031
